FAERS Safety Report 14124553 (Version 4)
Quarter: 2018Q2

REPORT INFORMATION
  Report Type: Spontaneous
  Country: US (occurrence: US)
  Receive Date: 20171025
  Receipt Date: 20180523
  Transmission Date: 20180711
  Serious: No
  Sender: FDA-Public Use
  Company Number: US-PFIZER INC-2017458940

PATIENT
  Age: 7 Decade
  Sex: Female
  Weight: 113.4 kg

DRUGS (1)
  1. METHOTREXATE SODIUM. [Suspect]
     Active Substance: METHOTREXATE SODIUM
     Indication: RHEUMATOID ARTHRITIS
     Dosage: UNK
     Dates: start: 2014, end: 2015

REACTIONS (6)
  - Dizziness [Unknown]
  - Malaise [Unknown]
  - Vomiting [Unknown]
  - Movement disorder [Unknown]
  - Diarrhoea [Unknown]
  - Lethargy [Unknown]
